FAERS Safety Report 21559099 (Version 3)
Quarter: 2022Q4

REPORT INFORMATION
  Report Type: Other
  Country: US (occurrence: None)
  Receive Date: 20221107
  Receipt Date: 20221122
  Transmission Date: 20230113
  Serious: Yes (Other)
  Sender: FDA-Public Use
  Company Number: US-ROCHE-2720011

PATIENT
  Sex: Female

DRUGS (20)
  1. CELLCEPT [Suspect]
     Active Substance: MYCOPHENOLATE MOFETIL
     Indication: Rheumatoid arthritis
     Route: 048
  2. CELLCEPT [Suspect]
     Active Substance: MYCOPHENOLATE MOFETIL
     Indication: Interstitial lung disease
  3. CELLCEPT [Suspect]
     Active Substance: MYCOPHENOLATE MOFETIL
     Indication: Dermatomyositis
  4. CELLCEPT [Suspect]
     Active Substance: MYCOPHENOLATE MOFETIL
     Indication: Immune system disorder
  5. CELLCEPT [Suspect]
     Active Substance: MYCOPHENOLATE MOFETIL
     Indication: Antisynthetase syndrome
  6. CALCIUM CARBONATE [Concomitant]
     Active Substance: CALCIUM CARBONATE
  7. ZYRTEC [Concomitant]
     Active Substance: CETIRIZINE HYDROCHLORIDE
  8. VITAMIN D3 [Concomitant]
     Active Substance: CHOLECALCIFEROL
  9. PEPCID [Concomitant]
     Active Substance: FAMOTIDINE
  10. FLONASE [Concomitant]
     Active Substance: FLUTICASONE PROPIONATE
  11. HYDRODIURIL [Concomitant]
     Active Substance: HYDROCHLOROTHIAZIDE
  12. MAGNESIUM [Concomitant]
     Active Substance: MAGNESIUM
  13. MELATONIN [Concomitant]
     Active Substance: MELATONIN
  14. LOPRESSOR [Concomitant]
     Active Substance: METOPROLOL TARTRATE
  15. ALEVE [Concomitant]
     Active Substance: NAPROXEN SODIUM
  16. PATADAY [Concomitant]
     Active Substance: OLOPATADINE HYDROCHLORIDE
  17. CRESTOR [Concomitant]
     Active Substance: ROSUVASTATIN CALCIUM
  18. GAS-X [Concomitant]
     Active Substance: DIMETHICONE
  19. SODIUM CHLORIDE [Concomitant]
     Active Substance: SODIUM CHLORIDE
  20. TACROLIMUS [Concomitant]
     Active Substance: TACROLIMUS

REACTIONS (3)
  - Off label use [Unknown]
  - Circumstance or information capable of leading to medication error [Unknown]
  - Interstitial lung disease [Unknown]
